APPROVED DRUG PRODUCT: EMBELINE E
Active Ingredient: CLOBETASOL PROPIONATE
Strength: 0.05%
Dosage Form/Route: CREAM;TOPICAL
Application: A075325 | Product #001
Applicant: HIKMA PHARMACEUTICALS USA INC
Approved: Dec 24, 1998 | RLD: No | RS: No | Type: DISCN